FAERS Safety Report 9890168 (Version 1)
Quarter: 2014Q1

REPORT INFORMATION
  Report Type: Spontaneous
  Country: US (occurrence: US)
  Receive Date: 20140212
  Receipt Date: 20140212
  Transmission Date: 20141002
  Serious: No
  Sender: FDA-Public Use
  Company Number: US-BIOGENIDEC-2014BI011642

PATIENT
  Sex: Female

DRUGS (7)
  1. TECFIDERA [Suspect]
     Indication: MULTIPLE SCLEROSIS
     Route: 048
     Dates: start: 20130828
  2. ALBUTEROL SULFATE [Concomitant]
  3. AMPHETAMINE-DEXTROAMPHET ER [Concomitant]
  4. CLONAZEPAM [Concomitant]
  5. ESTRADIOL [Concomitant]
  6. FLOMAX [Concomitant]
  7. REVATIO [Concomitant]

REACTIONS (1)
  - Hypersensitivity [Unknown]
